FAERS Safety Report 4916590-6 (Version None)
Quarter: 2006Q1

REPORT INFORMATION
  Report Type: 
  Country: None (occurrence: None)
  Receive Date: 20060220
  Receipt Date: 20051128
  Transmission Date: 20060701
  Serious: Yes (Hospitalization)
  Sender: FDA-Public Use
  Company Number: FR-GLAXOSMITHKLINE-B0402724A

PATIENT
  Age: 57 Year
  Sex: Female
  Weight: 60 kg

DRUGS (5)
  1. REQUIP [Suspect]
     Indication: PARKINSON'S DISEASE
     Route: 048
     Dates: start: 20050701, end: 20051117
  2. SEROPRAM [Suspect]
     Indication: DEPRESSED MOOD
     Route: 048
     Dates: start: 20051001, end: 20051001
  3. TRIVASTAL LP [Concomitant]
     Dosage: 50MG THREE TIMES PER DAY
     Route: 048
     Dates: start: 20010101
  4. MODOPAR [Concomitant]
     Dosage: 187.5MG THREE TIMES PER DAY
     Route: 048
     Dates: start: 20051101
  5. OGAST [Concomitant]
     Dosage: 30MG PER DAY
     Route: 048

REACTIONS (6)
  - ABNORMAL BEHAVIOUR [None]
  - DIFFICULTY IN WALKING [None]
  - DRUG INTERACTION [None]
  - HALLUCINATION, AUDITORY [None]
  - HALLUCINATION, OLFACTORY [None]
  - PERSECUTORY DELUSION [None]
